FAERS Safety Report 21708741 (Version 2)
Quarter: 2022Q4

REPORT INFORMATION
  Report Type: Spontaneous
  Country: US (occurrence: US)
  Receive Date: 20221210
  Receipt Date: 20221214
  Transmission Date: 20230112
  Serious: No
  Sender: FDA-Public Use
  Company Number: US-002147023-NVSC2022US284524

PATIENT
  Sex: Female

DRUGS (1)
  1. BIMATOPROST [Suspect]
     Active Substance: BIMATOPROST
     Indication: Product used for unknown indication
     Dosage: 0.03 %, QD (5ML LDP V2 US, 1X A DAY)
     Route: 065
     Dates: start: 20221114

REACTIONS (5)
  - Ocular hyperaemia [Unknown]
  - Visual impairment [Unknown]
  - Vision blurred [Unknown]
  - Eye pruritus [Unknown]
  - Eye discharge [Unknown]
